FAERS Safety Report 5201578-0 (Version None)
Quarter: 2007Q1

REPORT INFORMATION
  Report Type: 
  Country: None (occurrence: None)
  Receive Date: 20070104
  Receipt Date: 20061227
  Transmission Date: 20070707
  Serious: Yes (Hospitalization)
  Sender: FDA-Public Use
  Company Number: 200612AGG00551

PATIENT
  Age: 48 Year
  Sex: Male

DRUGS (4)
  1. AGGRASTAT [Suspect]
     Indication: ACUTE CORONARY SYNDROME
     Dosage: (144 MCG/KG INTRAVENOUS)
     Route: 042
     Dates: start: 20061129, end: 20061129
  2. HEPARIN [Suspect]
     Indication: ACUTE CORONARY SYNDROME
     Dosage: (24000 IU 1X/24 HOURS INTRAVENOUS))
     Route: 042
     Dates: start: 20061129, end: 20061130
  3. CLOPIDOGREL BISULFATE [Suspect]
     Indication: ACUTE CORONARY SYNDROME
     Dosage: (75 MG 1X/24 HOURS ORAL)
     Route: 048
     Dates: start: 20061120, end: 20061130
  4. ASPIRIN [Concomitant]

REACTIONS (3)
  - HAEMATURIA [None]
  - PETECHIAE [None]
  - PLATELET COUNT DECREASED [None]
